FAERS Safety Report 8829358 (Version 1)
Quarter: 2012Q4

REPORT INFORMATION
  Report Type: 
  Country: US (occurrence: US)
  Receive Date: 20121009
  Receipt Date: 20121009
  Transmission Date: 20130627
  Serious: Yes (Other)
  Sender: FDA-Public Use
  Company Number: US-AMGEN-USASP2012063034

PATIENT
  Age: 61 Year
  Sex: Female

DRUGS (3)
  1. VECTIBIX [Suspect]
     Indication: COLORECTAL CANCER METASTATIC
     Dosage: 6 mg/kg, one time dose
     Route: 042
     Dates: start: 20120516
  2. NORVASC [Concomitant]
     Indication: HYPERTENSION
     Dosage: 10 mg, qd
     Route: 048
  3. METFORMIN [Concomitant]
     Indication: TYPE 2 DIABETES MELLITUS
     Dosage: 1000 mg, bid
     Route: 048

REACTIONS (3)
  - Metastases to liver [Unknown]
  - Anaphylactic reaction [Unknown]
  - Rash [Recovered/Resolved]
